FAERS Safety Report 16624100 (Version 1)
Quarter: 2019Q3

REPORT INFORMATION
  Report Type: Spontaneous
  Country: US (occurrence: US)
  Receive Date: 20190724
  Receipt Date: 20190724
  Transmission Date: 20191004
  Serious: No
  Sender: FDA-Public Use
  Company Number: US-ASTRAZENECA-2019SF02484

PATIENT
  Age: 62 Year
  Sex: Male
  Weight: 77.1 kg

DRUGS (3)
  1. ZYRTEC [Concomitant]
     Active Substance: CETIRIZINE HYDROCHLORIDE
  2. CLARITIN [Concomitant]
     Active Substance: LORATADINE
  3. SYMBICORT [Suspect]
     Active Substance: BUDESONIDE\FORMOTEROL FUMARATE DIHYDRATE
     Indication: ASTHMA
     Dosage: 160/4.5 MCG 2 PUFFS TWICE PER DAY
     Route: 055

REACTIONS (8)
  - Body height decreased [Unknown]
  - Chronic obstructive pulmonary disease [Unknown]
  - Product packaging issue [Unknown]
  - Dyspnoea [Recovering/Resolving]
  - Atrial fibrillation [Not Recovered/Not Resolved]
  - Underdose [Unknown]
  - Emphysema [Unknown]
  - Intentional product misuse [Unknown]

NARRATIVE: CASE EVENT DATE: 2008
